FAERS Safety Report 4685149-0 (Version None)
Quarter: 2005Q2

REPORT INFORMATION
  Report Type: 
  Country: None (occurrence: None)
  Receive Date: 20050608
  Receipt Date: 20050502
  Transmission Date: 20051028
  Serious: Yes (Hospitalization, Other)
  Sender: FDA-Public Use
  Company Number: 200513868GDDC

PATIENT
  Age: 40 Year
  Sex: Male

DRUGS (4)
  1. ALLEGRA [Suspect]
     Indication: RHINITIS ALLERGIC
     Dosage: DOSE: UNK
     Route: 048
     Dates: start: 20010301, end: 20050330
  2. CLARITIN REDITABS [Suspect]
     Indication: RHINITIS ALLERGIC
     Route: 048
     Dates: start: 20050321, end: 20050330
  3. LIVOSTIN [Concomitant]
     Indication: RHINITIS ALLERGIC
     Route: 047
     Dates: start: 20050309, end: 20050330
  4. BECLOMETHASONE DIPROPIONATE [Concomitant]
     Indication: RHINITIS ALLERGIC
     Route: 045
     Dates: start: 20050321, end: 20050330

REACTIONS (6)
  - CONVULSION [None]
  - DRUG INEFFECTIVE [None]
  - ELECTROENCEPHALOGRAM ABNORMAL [None]
  - EPILEPSY [None]
  - LOSS OF CONSCIOUSNESS [None]
  - MALAISE [None]
